FAERS Safety Report 4462066-2 (Version None)
Quarter: 2004Q3

REPORT INFORMATION
  Report Type: 
  Country: None (occurrence: None)
  Receive Date: 20040927
  Receipt Date: 20040927
  Transmission Date: 20050211
  Serious: Yes (Disabling)
  Sender: FDA-Public Use
  Company Number: None

PATIENT
  Age: 50 Year
  Sex: Female
  Weight: 33.3394 kg

DRUGS (6)
  1. GEODON [Suspect]
     Indication: BIPOLAR II DISORDER
     Dosage: PO 1 TAB, QHS
     Route: 048
     Dates: start: 20040806, end: 20040924
  2. DEPAKOTE [Concomitant]
  3. ACTOS [Concomitant]
  4. GLUCOPHAGE [Concomitant]
  5. ACIPHEX [Concomitant]
  6. AVALIDE [Concomitant]

REACTIONS (3)
  - ATAXIA [None]
  - BALANCE DISORDER [None]
  - TREMOR [None]
